FAERS Safety Report 6670456-2 (Version None)
Quarter: 2010Q2

REPORT INFORMATION
  Report Type: 
  Country: None (occurrence: None)
  Receive Date: 20100407
  Receipt Date: 20100331
  Transmission Date: 20101027
  Serious: No
  Sender: FDA-Public Use
  Company Number: US-BIOGENIDEC-2010BI006274

PATIENT
  Sex: Female

DRUGS (2)
  1. TYSABRI [Suspect]
     Indication: MULTIPLE SCLEROSIS
     Route: 042
     Dates: start: 20070214, end: 20100101
  2. MEDICATIONS (NOS) [Concomitant]

REACTIONS (3)
  - ADVERSE EVENT [None]
  - HYPERSENSITIVITY [None]
  - RASH GENERALISED [None]
